FAERS Safety Report 15134898 (Version 1)
Quarter: 2018Q3

REPORT INFORMATION
  Report Type: Report from Study
  Country: US (occurrence: US)
  Receive Date: 20180712
  Receipt Date: 20180712
  Transmission Date: 20181010
  Serious: Yes (Other)
  Sender: FDA-Public Use
  Company Number: US-ROCHE-2118864

PATIENT
  Sex: Male
  Weight: 118.49 kg

DRUGS (9)
  1. PERJETA [Suspect]
     Active Substance: PERTUZUMAB
     Indication: SALIVARY GLAND CANCER
     Route: 065
     Dates: start: 201702, end: 20180420
  2. PERJETA [Suspect]
     Active Substance: PERTUZUMAB
     Indication: OESTROGEN RECEPTOR ASSAY POSITIVE
     Route: 065
     Dates: start: 20180627
  3. PERJETA [Suspect]
     Active Substance: PERTUZUMAB
     Indication: ADENOCARCINOMA OF SALIVARY GLAND
  4. HERCEPTIN [Suspect]
     Active Substance: TRASTUZUMAB
     Indication: OESTROGEN RECEPTOR ASSAY POSITIVE
     Route: 065
     Dates: start: 20180627
  5. PERJETA [Suspect]
     Active Substance: PERTUZUMAB
     Indication: ADENOCARCINOMA OF SALIVARY GLAND
  6. HERCEPTIN [Suspect]
     Active Substance: TRASTUZUMAB
     Indication: ADENOCARCINOMA OF SALIVARY GLAND
  7. HERCEPTIN [Suspect]
     Active Substance: TRASTUZUMAB
     Indication: SALIVARY GLAND CANCER
     Route: 065
     Dates: start: 201702, end: 20180420
  8. HERCEPTIN [Suspect]
     Active Substance: TRASTUZUMAB
     Indication: ADENOCARCINOMA OF SALIVARY GLAND
  9. TAXOL [Concomitant]
     Active Substance: PACLITAXEL

REACTIONS (5)
  - Fatigue [Recovered/Resolved]
  - Splenic lesion [Unknown]
  - Off label use [Unknown]
  - Malignant neoplasm progression [Unknown]
  - Intentional product use issue [Unknown]
